FAERS Safety Report 24199520 (Version 2)
Quarter: 2024Q4

REPORT INFORMATION
  Report Type: Report from Study
  Country: US (occurrence: US)
  Receive Date: 20240812
  Receipt Date: 20241104
  Transmission Date: 20250115
  Serious: No
  Sender: AIMMUNE
  Company Number: US-ZENPEP LLC-2024AIMT01193

PATIENT

DRUGS (3)
  1. ZENPEP [Suspect]
     Active Substance: PANCRELIPASE AMYLASE\PANCRELIPASE LIPASE\PANCRELIPASE PROTEASE
     Indication: Pancreatic failure
     Dosage: 40 000 UPS UNITS, 100CT CAPSULES
     Route: 048
     Dates: start: 20240708
  2. ZENPEP [Suspect]
     Active Substance: PANCRELIPASE AMYLASE\PANCRELIPASE LIPASE\PANCRELIPASE PROTEASE
     Dosage: 40 000 UPS UNITS, 100CT CAPSULES, ONCE, LAST DOSE
     Route: 048
  3. DONEPEZIL [Concomitant]
     Active Substance: DONEPEZIL
     Indication: Dementia
     Dosage: 10MG

REACTIONS (1)
  - No adverse event [Unknown]
